FAERS Safety Report 9851302 (Version 1)
Quarter: 2014Q1

REPORT INFORMATION
  Report Type: Spontaneous
  Country: US (occurrence: US)
  Receive Date: 20140129
  Receipt Date: 20140129
  Transmission Date: 20141002
  Serious: Yes (Disabling, Other)
  Sender: FDA-Public Use
  Company Number: US-PFIZER INC-2014023906

PATIENT
  Age: 61 Year
  Sex: Male
  Weight: 78.01 kg

DRUGS (4)
  1. VIAGRA [Suspect]
     Indication: ERECTILE DYSFUNCTION
     Dosage: UNK, AS NEEDED
     Route: 048
  2. DILTIAZEM [Concomitant]
     Indication: HYPERTENSION
     Dosage: 30 MG, 3X/DAY
  3. METOPROLOL [Concomitant]
     Indication: HYPERTENSION
     Dosage: UNK
  4. ALPRAZOLAM [Concomitant]
     Dosage: 1 MG, AS NEEDED

REACTIONS (6)
  - Arthritis [Unknown]
  - Musculoskeletal disorder [Unknown]
  - Local swelling [Recovered/Resolved]
  - Weight decreased [Unknown]
  - Gastrooesophageal reflux disease [Unknown]
  - Goitre [Unknown]
